FAERS Safety Report 22197700 (Version 2)
Quarter: 2023Q2

REPORT INFORMATION
  Report Type: Spontaneous
  Country: US (occurrence: US)
  Receive Date: 20230411
  Receipt Date: 20230411
  Transmission Date: 20230721
  Serious: Yes (Death, Life-Threatening, Hospitalization, Other)
  Sender: FDA-Public Use
  Company Number: US-MLMSERVICE-20230329-4187270-1

PATIENT
  Age: 69 Year
  Sex: Male

DRUGS (2)
  1. HEPARIN SODIUM [Suspect]
     Active Substance: HEPARIN SODIUM
     Indication: Anticoagulant therapy
     Dosage: UNK
  2. TICAGRELOR [Concomitant]
     Active Substance: TICAGRELOR
     Dosage: UNK

REACTIONS (4)
  - Heparin-induced thrombocytopenia [Fatal]
  - Cardiac ventricular thrombosis [Fatal]
  - Arterial thrombosis [Fatal]
  - Acute kidney injury [Fatal]
